FAERS Safety Report 9193789 (Version 1)
Quarter: 2013Q1

REPORT INFORMATION
  Report Type: Spontaneous
  Country: MX (occurrence: MX)
  Receive Date: 20130327
  Receipt Date: 20130327
  Transmission Date: 20140127
  Serious: Yes (Disabling)
  Sender: FDA-Public Use
  Company Number: PHHY2013MX029858

PATIENT
  Age: 62 Year
  Sex: Male

DRUGS (1)
  1. DIOVAN [Suspect]
     Indication: HYPERTENSION
     Dosage: 80 MG, DAILY
     Route: 048

REACTIONS (3)
  - Deafness [Not Recovered/Not Resolved]
  - Hypertension [Not Recovered/Not Resolved]
  - Pharyngitis [Recovered/Resolved]
